FAERS Safety Report 25272655 (Version 1)
Quarter: 2025Q2

REPORT INFORMATION
  Report Type: Report from Study
  Country: EG (occurrence: EG)
  Receive Date: 20250506
  Receipt Date: 20250506
  Transmission Date: 20250717
  Serious: Yes (Death, Hospitalization)
  Sender: ROCHE
  Company Number: EG-ROCHE-10000276075

PATIENT
  Age: 1 Year
  Sex: Female
  Weight: 7 kg

DRUGS (1)
  1. EVRYSDI [Suspect]
     Active Substance: RISDIPLAM
     Indication: Spinal muscular atrophy
     Route: 048
     Dates: start: 20241020, end: 20250401

REACTIONS (1)
  - Pneumonia [Fatal]

NARRATIVE: CASE EVENT DATE: 20250315
